FAERS Safety Report 6038514-3 (Version None)
Quarter: 2009Q1

REPORT INFORMATION
  Report Type: 
  Country: None (occurrence: None)
  Receive Date: 20090115
  Receipt Date: 20081010
  Transmission Date: 20090719
  Serious: No
  Sender: FDA-Public Use
  Company Number: US-KINGPHARMUSA00001-K200801187

PATIENT
  Age: 35 Year
  Sex: Male
  Weight: 77.098 kg

DRUGS (6)
  1. EPIPEN [Suspect]
     Indication: FOOD ALLERGY
     Dosage: .3 MG, SINGLE
     Route: 030
     Dates: start: 20081010, end: 20081010
  2. EPIPEN [Suspect]
     Indication: SWOLLEN TONGUE
  3. DIPHENHYDRAMINE HYDROCHLORIDE [Suspect]
     Indication: FOOD ALLERGY
     Dates: start: 20081010
  4. DIPHENHYDRAMINE HYDROCHLORIDE [Suspect]
     Indication: SWOLLEN TONGUE
  5. VITAMINS                           /90003601/ [Concomitant]
  6. FISH OIL [Concomitant]
     Dosage: UNK, UNK

REACTIONS (1)
  - DRUG INEFFECTIVE [None]
